FAERS Safety Report 25510922 (Version 1)
Quarter: 2025Q3

REPORT INFORMATION
  Report Type: Report from Study
  Country: US (occurrence: US)
  Receive Date: 20250703
  Receipt Date: 20250703
  Transmission Date: 20251020
  Serious: Yes (Hospitalization)
  Sender: GILEAD
  Company Number: US-GILEAD-2025-0719134

PATIENT
  Sex: Female

DRUGS (19)
  1. AZTREONAM LYSINE [Suspect]
     Active Substance: AZTREONAM LYSINE
     Indication: Cystic fibrosis
     Dosage: INHALE 1 ML (75 MG) VIA NEBULIZER THREE TIMES DAILY FOR 28 DAYS ON AND 28 DAYS OFF ALTERNATING WITH
     Route: 055
     Dates: start: 20221228
  2. WIXELA INHUB AER 100/50 [Concomitant]
  3. ALBUTEROL\IPRATROPIUM BROMIDE [Concomitant]
     Active Substance: ALBUTEROL\IPRATROPIUM BROMIDE
  4. TRULANCE [Concomitant]
     Active Substance: PLECANATIDE
  5. BETHANECHOL [Concomitant]
     Active Substance: BETHANECHOL
  6. ESCITALOPRAM TAB 5MG [Concomitant]
  7. CETIRIZINE [Concomitant]
     Active Substance: CETIRIZINE HYDROCHLORIDE
  8. MINERALS\VITAMINS [Concomitant]
     Active Substance: MINERALS\VITAMINS
  9. AMITRIPTYLINE HYDROCHLORIDE [Concomitant]
     Active Substance: AMITRIPTYLINE HYDROCHLORIDE
  10. ALBUTEROL SULFATE [Concomitant]
     Active Substance: ALBUTEROL SULFATE
  11. OMEPRAZOLE [Concomitant]
     Active Substance: OMEPRAZOLE
  12. PULMOZYME [Concomitant]
     Active Substance: DORNASE ALFA
  13. ALBUTEROL SULFATE [Concomitant]
     Active Substance: ALBUTEROL SULFATE
  14. LUBIPROSTONE [Concomitant]
     Active Substance: LUBIPROSTONE
  15. SYMBICORT [Concomitant]
     Active Substance: BUDESONIDE\FORMOTEROL FUMARATE DIHYDRATE
  16. CREON [Concomitant]
     Active Substance: PANCRELIPASE AMYLASE\PANCRELIPASE LIPASE\PANCRELIPASE PROTEASE
  17. CIPROFLOXACIN TAB 750MG [Concomitant]
  18. SOD CHLORIDE NEB 3% [Concomitant]
  19. PRUCALOPRIDE [Concomitant]
     Active Substance: PRUCALOPRIDE

REACTIONS (5)
  - Cystic fibrosis respiratory infection suppression [Unknown]
  - Gait disturbance [Unknown]
  - Sleep disorder [Unknown]
  - Loss of personal independence in daily activities [Unknown]
  - Social problem [Unknown]
